FAERS Safety Report 16249327 (Version 1)
Quarter: 2019Q2

REPORT INFORMATION
  Report Type: Spontaneous
  Country: GB (occurrence: GB)
  Receive Date: 20190429
  Receipt Date: 20190429
  Transmission Date: 20190711
  Serious: Yes (Other)
  Sender: FDA-Public Use
  Company Number: GB-ACCORD-124193

PATIENT
  Age: 87 Year
  Sex: Female
  Weight: 49 kg

DRUGS (9)
  1. MIRTAZAPINE. [Concomitant]
     Active Substance: MIRTAZAPINE
  2. MEMANTINE. [Concomitant]
     Active Substance: MEMANTINE
  3. ACETYLSALICYLIC ACID [Concomitant]
     Active Substance: ASPIRIN
  4. DONEPEZIL/DONEPEZIL HYDROCHLORIDE [Suspect]
     Active Substance: DONEPEZIL HYDROCHLORIDE
     Indication: MIXED DEMENTIA
     Route: 048
     Dates: start: 20180301, end: 20190201
  5. FOLIC ACID. [Concomitant]
     Active Substance: FOLIC ACID
  6. NITROFURANTOIN/NITROFURANTOIN SODIUM [Concomitant]
  7. FULTIUM-D3 [Concomitant]
     Active Substance: CHOLECALCIFEROL
  8. BISOPROLOL [Concomitant]
     Active Substance: BISOPROLOL
  9. PROLIA [Concomitant]
     Active Substance: DENOSUMAB

REACTIONS (1)
  - Salivary hypersecretion [Recovered/Resolved]

NARRATIVE: CASE EVENT DATE: 20181001
